FAERS Safety Report 11858529 (Version 1)
Quarter: 2015Q4

REPORT INFORMATION
  Report Type: Spontaneous
  Country: FR (occurrence: FR)
  Receive Date: 20151222
  Receipt Date: 20151222
  Transmission Date: 20160305
  Serious: Yes (Hospitalization)
  Sender: FDA-Public Use
  Company Number: FR-BIOVITRUM-2015FR0755

PATIENT
  Sex: Male

DRUGS (1)
  1. ORFADIN [Suspect]
     Active Substance: NITISINONE
     Indication: TYROSINAEMIA
     Route: 048
     Dates: start: 201510

REACTIONS (2)
  - Septic shock [Not Recovered/Not Resolved]
  - Bronchiolitis [Not Recovered/Not Resolved]

NARRATIVE: CASE EVENT DATE: 201512
